FAERS Safety Report 13243037 (Version 2)
Quarter: 2017Q2

REPORT INFORMATION
  Report Type: Spontaneous
  Country: US (occurrence: US)
  Receive Date: 20170216
  Receipt Date: 20170606
  Transmission Date: 20170830
  Serious: No
  Sender: FDA-Public Use
  Company Number: US-TEVA-739397ACC

PATIENT
  Age: 50 Year
  Sex: Female

DRUGS (15)
  1. IRON [Concomitant]
     Active Substance: IRON
  2. OMEPRAZOLE. [Concomitant]
     Active Substance: OMEPRAZOLE
  3. VENTOLIN [Concomitant]
     Active Substance: ALBUTEROL SULFATE
  4. GABAPENTIN. [Concomitant]
     Active Substance: GABAPENTIN
  5. METOPROLOL TARTRATE. [Concomitant]
     Active Substance: METOPROLOL TARTRATE
  6. LISINOPRIL. [Concomitant]
     Active Substance: LISINOPRIL
  7. FLINTSTONES [Concomitant]
  8. MELOXICAM. [Concomitant]
     Active Substance: MELOXICAM
  9. PROAIR HFA [Concomitant]
     Active Substance: ALBUTEROL SULFATE
  10. METFORMIN [Concomitant]
     Active Substance: METFORMIN HYDROCHLORIDE
  11. CALTRATE [Concomitant]
     Active Substance: CALCIUM CARBONATE
  12. LYRICA [Concomitant]
     Active Substance: PREGABALIN
  13. COPAXONE [Suspect]
     Active Substance: GLATIRAMER ACETATE
     Indication: MULTIPLE SCLEROSIS
     Route: 058
     Dates: start: 20161129
  14. MAGNESIUM [Concomitant]
     Active Substance: MAGNESIUM
  15. ATORVASTATIN [Concomitant]
     Active Substance: ATORVASTATIN

REACTIONS (2)
  - Drug dose omission [Not Recovered/Not Resolved]
  - Injection site pruritus [Not Recovered/Not Resolved]

NARRATIVE: CASE EVENT DATE: 201701
